FAERS Safety Report 23358973 (Version 1)
Quarter: 2024Q1

REPORT INFORMATION
  Report Type: Spontaneous
  Country: CN (occurrence: CN)
  Receive Date: 20240102
  Receipt Date: 20240102
  Transmission Date: 20240410
  Serious: Yes (Hospitalization)
  Sender: FDA-Public Use
  Company Number: CN-PFIZER INC-PV202300207183

PATIENT
  Age: 50 Year
  Sex: Female
  Weight: 65.6 kg

DRUGS (2)
  1. METHOTREXATE SODIUM [Suspect]
     Active Substance: METHOTREXATE SODIUM
     Indication: Malignant hydatidiform mole
     Dosage: 200 MG, ALTERNATE DAY (D1, D3, D5, D7)
     Route: 030
     Dates: start: 20230909, end: 20230915
  2. LEVOLEUCOVORIN CALCIUM [Concomitant]
     Active Substance: LEVOLEUCOVORIN CALCIUM
     Dosage: 0.75 MG, ALTERNATE DAY (D2, D4, D6, D8)
     Route: 041
     Dates: start: 20230910, end: 20230916

REACTIONS (2)
  - Liver injury [Recovering/Resolving]
  - Off label use [Unknown]

NARRATIVE: CASE EVENT DATE: 20230909
